FAERS Safety Report 12421095 (Version 2)
Quarter: 2016Q3

REPORT INFORMATION
  Report Type: Spontaneous
  Country: JP (occurrence: JP)
  Receive Date: 20160531
  Receipt Date: 20160711
  Transmission Date: 20161109
  Serious: Yes (Other)
  Sender: FDA-Public Use
  Company Number: JP-ELI_LILLY_AND_COMPANY-JP201605010478

PATIENT
  Sex: Male

DRUGS (2)
  1. BEVACIZUMAB [Suspect]
     Active Substance: BEVACIZUMAB
     Indication: COLORECTAL CANCER
     Dosage: UNK UNK, UNKNOWN
     Route: 042
     Dates: end: 201604
  2. ERBITUX [Suspect]
     Active Substance: CETUXIMAB
     Indication: COLORECTAL CANCER
     Dosage: 400 MG/M2, QD
     Route: 042
     Dates: start: 20160506, end: 20160506

REACTIONS (2)
  - Fatigue [Recovered/Resolved]
  - Intestinal perforation [Unknown]

NARRATIVE: CASE EVENT DATE: 20160512
